FAERS Safety Report 9001495 (Version 2)
Quarter: 2013Q1

REPORT INFORMATION
  Report Type: Spontaneous
  Country: JP (occurrence: JP)
  Receive Date: 20130107
  Receipt Date: 20130305
  Transmission Date: 20140127
  Serious: Yes (Death)
  Sender: FDA-Public Use
  Company Number: JP-ALEXION-A201202524

PATIENT
  Age: 70 Year
  Sex: Female

DRUGS (9)
  1. SOLIRIS 300MG [Suspect]
     Indication: PAROXYSMAL NOCTURNAL HAEMOGLOBINURIA
     Dosage: 900 MG, Q2W
     Route: 042
     Dates: start: 20110422, end: 20121214
  2. METLIGINE [Concomitant]
     Dosage: 6 MG, QD
     Dates: end: 20121130
  3. GASTER D [Concomitant]
     Dosage: 20 MG, QD
     Dates: end: 20121130
  4. URSO [Concomitant]
     Dosage: 600 MG, QD
     Dates: start: 20111117, end: 20121230
  5. PORTOLAC [Concomitant]
     Dosage: 18 MG, QD
     Dates: start: 20120627, end: 20121130
  6. KANAMYCIN [Concomitant]
     Dosage: 1500 MG, QD
     Dates: start: 20120730, end: 20120904
  7. LIVACT [Concomitant]
     Dosage: 12.45 G, QD
     Dates: start: 20120628, end: 20121130
  8. TSUMURA DAISAIKOTOU [Concomitant]
     Dosage: 25 MG, QD
     Dates: start: 20110711, end: 20120405
  9. EXJADE [Concomitant]
     Dosage: 125 MG, QD
     Dates: end: 20121004

REACTIONS (1)
  - Hepatic encephalopathy [Fatal]
